FAERS Safety Report 6839186-8 (Version None)
Quarter: 2010Q2

REPORT INFORMATION
  Report Type: 
  Country: None (occurrence: None)
  Receive Date: 20100629
  Receipt Date: 20100524
  Transmission Date: 20101027
  Serious: No
  Sender: FDA-Public Use
  Company Number: US-WYE-H15389110

PATIENT
  Age: 73 Year
  Sex: Female
  Weight: 57.66 kg

DRUGS (1)
  1. TORISEL [Suspect]
     Indication: RENAL CANCER
     Dosage: INTRAVENOUS
     Route: 042
     Dates: start: 20090101, end: 20100301

REACTIONS (3)
  - BLOOD GLUCOSE INCREASED [None]
  - DISEASE PROGRESSION [None]
  - RASH [None]
